FAERS Safety Report 13770727 (Version 2)
Quarter: 2017Q3

REPORT INFORMATION
  Report Type: Spontaneous
  Country: DE (occurrence: DE)
  Receive Date: 20170719
  Receipt Date: 20170907
  Transmission Date: 20171127
  Serious: Yes (Other)
  Sender: FDA-Public Use
  Company Number: DE-AMGEN-DEUSP2017106049

PATIENT
  Age: 67 Year
  Sex: Male

DRUGS (4)
  1. ARANESP [Suspect]
     Active Substance: DARBEPOETIN ALFA
     Dosage: 120 MUG, Q3WK
     Route: 065
     Dates: start: 2017
  2. ARANESP [Suspect]
     Active Substance: DARBEPOETIN ALFA
     Indication: PRODUCT USED FOR UNKNOWN INDICATION
     Dosage: 40 MUG, Q3WK
     Route: 065
     Dates: start: 2016
  3. VALPROAT [Suspect]
     Active Substance: VALPROATE SODIUM
     Indication: ACCIDENT
     Dosage: UNK
     Route: 065
  4. ARANESP [Suspect]
     Active Substance: DARBEPOETIN ALFA
     Dosage: 40 MUG, QWK
     Route: 065
     Dates: start: 2017

REACTIONS (6)
  - Renal failure [Unknown]
  - Haematocrit decreased [Unknown]
  - Accident [Unknown]
  - Bone marrow failure [Unknown]
  - Drug effect decreased [Unknown]
  - Haemoglobin decreased [Unknown]

NARRATIVE: CASE EVENT DATE: 20170703
